FAERS Safety Report 20710628 (Version 1)
Quarter: 2022Q2

REPORT INFORMATION
  Report Type: Report from Study
  Country: US (occurrence: US)
  Receive Date: 20220414
  Receipt Date: 20220414
  Transmission Date: 20220721
  Serious: Yes (Hospitalization)
  Sender: FDA-Public Use
  Company Number: US-Taiho Oncology Inc-EU-2022-00354

PATIENT
  Age: 72 Year
  Sex: Female
  Weight: 72 kg

DRUGS (12)
  1. LONSURF [Suspect]
     Active Substance: TIPIRACIL HYDROCHLORIDE\TRIFLURIDINE
     Indication: Colon cancer
     Dosage: CYCLE 1
     Route: 048
     Dates: start: 20220201
  2. LONSURF [Suspect]
     Active Substance: TIPIRACIL HYDROCHLORIDE\TRIFLURIDINE
     Dosage: CYCLE 3
     Route: 048
  3. ASPIRIN [Concomitant]
     Active Substance: ASPIRIN
  4. AVASTIN [Concomitant]
     Active Substance: BEVACIZUMAB
  5. CLONAZEPAM [Concomitant]
     Active Substance: CLONAZEPAM
  6. VITAMIN B12 [Concomitant]
     Active Substance: CYANOCOBALAMIN
  7. LISINOPRIL AND HYDROCHLOROTHIAZIDE [Concomitant]
     Active Substance: HYDROCHLOROTHIAZIDE\LISINOPRIL
  8. ONDANSETRON [Concomitant]
     Active Substance: ONDANSETRON
  9. PROLIA [Concomitant]
     Active Substance: DENOSUMAB
  10. ROSUVASTATIN [Concomitant]
     Active Substance: ROSUVASTATIN
  11. VITAMIN C [Concomitant]
     Active Substance: ASCORBIC ACID
  12. VITAMIN D3 [Concomitant]
     Active Substance: CHOLECALCIFEROL

REACTIONS (4)
  - Blood potassium decreased [Unknown]
  - Nausea [Not Recovered/Not Resolved]
  - Diarrhoea [Not Recovered/Not Resolved]
  - Vomiting [Unknown]

NARRATIVE: CASE EVENT DATE: 20220205
